FAERS Safety Report 12237513 (Version 1)
Quarter: 2016Q2

REPORT INFORMATION
  Report Type: Spontaneous
  Country: US (occurrence: None)
  Receive Date: 20160404
  Receipt Date: 20160404
  Transmission Date: 20160815
  Serious: Yes (Life-Threatening)
  Sender: FDA-Public Use
  Company Number: None

PATIENT
  Age: 41 Year
  Sex: Female
  Weight: 53.52 kg

DRUGS (5)
  1. FLORENT INHALER [Concomitant]
  2. AMOXICILLIN. [Suspect]
     Active Substance: AMOXICILLIN
     Indication: INFECTION
     Dosage: 12 TABLESPOON (S) EVERY 12 HOURS TAKEN BY MOUTH
     Route: 048
  3. CENTRUM CHEWABLES MULTIVITAMINS [Concomitant]
  4. VITAMIN C [Concomitant]
     Active Substance: ASCORBIC ACID
  5. PURPLE ABSORB IRON SUPPLEMENT [Concomitant]

REACTIONS (2)
  - Heart rate increased [None]
  - Myocardial infarction [None]

NARRATIVE: CASE EVENT DATE: 20160401
